APPROVED DRUG PRODUCT: DEXTROAMP SACCHARATE, AMP ASPARTATE, DEXTROAMP SULFATE AND AMP SULFATE
Active Ingredient: AMPHETAMINE ASPARTATE; AMPHETAMINE SULFATE; DEXTROAMPHETAMINE SACCHARATE; DEXTROAMPHETAMINE SULFATE
Strength: 5MG;5MG;5MG;5MG
Dosage Form/Route: TABLET;ORAL
Application: A210293 | Product #005 | TE Code: AB
Applicant: ORYZA PHARMACEUTICALS INC
Approved: Apr 3, 2020 | RLD: No | RS: No | Type: RX